FAERS Safety Report 15052734 (Version 1)
Quarter: 2018Q2

REPORT INFORMATION
  Report Type: Spontaneous
  Country: US (occurrence: US)
  Receive Date: 20180602
  Receipt Date: 20180602
  Transmission Date: 20180711
  Serious: No
  Sender: FDA-Public Use
  Company Number: None

PATIENT
  Age: 64 Year
  Sex: Male

DRUGS (2)
  1. TACROLIMUS CAP [Suspect]
     Active Substance: TACROLIMUS
     Dates: start: 20170324, end: 20180602
  2. TACROLIMUS. [Suspect]
     Active Substance: TACROLIMUS
     Dates: start: 20170324, end: 20180602

REACTIONS (1)
  - Off label use [None]

NARRATIVE: CASE EVENT DATE: 20180602
